FAERS Safety Report 7991983-1 (Version None)
Quarter: 2011Q4

REPORT INFORMATION
  Report Type: 
  Country: None (occurrence: None)
  Receive Date: 20111219
  Receipt Date: 20110929
  Transmission Date: 20120403
  Serious: No
  Sender: FDA-Public Use
  Company Number: US-ASTRAZENECA-2011SE58800

PATIENT
  Age: 54 Year
  Sex: Female

DRUGS (2)
  1. CRESTOR [Suspect]
     Route: 048
  2. TOPICAL ANTI-FUNGAL CREAM [Interacting]
     Route: 061

REACTIONS (3)
  - BLOOD CALCIUM DECREASED [None]
  - DRUG INTERACTION [None]
  - PRODUCT TASTE ABNORMAL [None]
